FAERS Safety Report 7437956-9 (Version None)
Quarter: 2011Q2

REPORT INFORMATION
  Report Type: 
  Country: None (occurrence: None)
  Receive Date: 20110426
  Receipt Date: 20110415
  Transmission Date: 20111010
  Serious: Yes (Hospitalization, Other)
  Sender: FDA-Public Use
  Company Number: FR-ELI_LILLY_AND_COMPANY-FR201104004412

PATIENT
  Sex: Male

DRUGS (4)
  1. ALDACTONE [Concomitant]
     Dosage: 75 MG, QD
     Route: 048
     Dates: start: 20100201
  2. GEMZAR [Suspect]
     Indication: ADENOCARCINOMA PANCREAS
     Dosage: 18 CURES N TOTAL
     Route: 042
     Dates: start: 20090601, end: 20100210
  3. TIAPRIDAL [Concomitant]
     Dosage: 1 DOSAGE A DAY
  4. EQUANIL [Concomitant]
     Dosage: 400 MG, BID
     Route: 048

REACTIONS (2)
  - GENERALISED OEDEMA [None]
  - INTERSTITIAL LUNG DISEASE [None]
